FAERS Safety Report 9472494 (Version 3)
Quarter: 2013Q4

REPORT INFORMATION
  Report Type: Spontaneous
  Country: US (occurrence: US)
  Receive Date: 20130823
  Receipt Date: 20131029
  Transmission Date: 20140711
  Serious: Yes (Hospitalization, Other)
  Sender: FDA-Public Use
  Company Number: US-UCBSA-095765

PATIENT
  Age: 54 Year
  Sex: Female
  Weight: 114 kg

DRUGS (3)
  1. KEPPRA [Suspect]
     Indication: CONVULSION
     Dates: start: 20130616
  2. METFORMIN [Concomitant]
     Indication: DIABETES MELLITUS
  3. TRICOR [Concomitant]
     Indication: HYPERLIPIDAEMIA
     Route: 048

REACTIONS (5)
  - Cerebrovascular accident [Not Recovered/Not Resolved]
  - Respiratory failure [Unknown]
  - Dyspnoea [Recovered/Resolved]
  - Convulsion [Unknown]
  - Hypercoagulation [Unknown]
